FAERS Safety Report 6687737-9 (Version None)
Quarter: 2010Q2

REPORT INFORMATION
  Report Type: 
  Country: None (occurrence: None)
  Receive Date: 20100420
  Receipt Date: 20100412
  Transmission Date: 20101027
  Serious: Yes (Hospitalization)
  Sender: FDA-Public Use
  Company Number: US-BIOGENIDEC-2010BI010293

PATIENT
  Age: 59 Year
  Sex: Female

DRUGS (1)
  1. AVONEX [Suspect]
     Indication: MULTIPLE SCLEROSIS
     Route: 030
     Dates: start: 20060810

REACTIONS (5)
  - FALL [None]
  - FIBULA FRACTURE [None]
  - NEUTROPENIA [None]
  - URINARY TRACT INFECTION [None]
  - VITAMIN B12 DECREASED [None]
